FAERS Safety Report 20983262 (Version 2)
Quarter: 2022Q2

REPORT INFORMATION
  Report Type: Spontaneous
  Country: US (occurrence: US)
  Receive Date: 20220620
  Receipt Date: 20220622
  Transmission Date: 20220721
  Serious: No
  Sender: FDA-Public Use
  Company Number: US-PFIZER INC-202200845454

PATIENT
  Age: 62 Year
  Sex: Female

DRUGS (1)
  1. PAXLOVID [Suspect]
     Active Substance: NIRMATRELVIR\RITONAVIR
     Indication: COVID-19 treatment
     Dosage: UNK

REACTIONS (10)
  - Feeling abnormal [Unknown]
  - Nervousness [Unknown]
  - Fatigue [Unknown]
  - Malaise [Unknown]
  - Emotional disorder [Unknown]
  - Crying [Unknown]
  - Taste disorder [Unknown]
  - Incorrect dose administered [Unknown]
  - Product physical issue [Unknown]
  - Product colour issue [Unknown]
